FAERS Safety Report 10178294 (Version 1)
Quarter: 2014Q2

REPORT INFORMATION
  Report Type: Spontaneous
  Country: US (occurrence: None)
  Receive Date: 20140516
  Receipt Date: 20140516
  Transmission Date: 20141212
  Serious: Yes (Other)
  Sender: FDA-Public Use
  Company Number: None

PATIENT
  Age: 54 Year
  Sex: Female
  Weight: 84.82 kg

DRUGS (2)
  1. LAMICTAL 100MG [Suspect]
     Indication: DEPRESSION
     Dosage: 100 MG  1/2 @HS P.O.
     Route: 048
     Dates: start: 20140416, end: 20140425
  2. LAMICTAL 100MG [Suspect]
     Indication: POST-TRAUMATIC STRESS DISORDER
     Dosage: 100 MG  1/2 @HS P.O.
     Route: 048
     Dates: start: 20140416, end: 20140425

REACTIONS (5)
  - Stevens-Johnson syndrome [None]
  - Drug hypersensitivity [None]
  - Dyspnoea [None]
  - Fatigue [None]
  - Anxiety [None]
